FAERS Safety Report 9789735 (Version 3)
Quarter: 2014Q1

REPORT INFORMATION
  Report Type: Spontaneous
  Country: IT (occurrence: None)
  Receive Date: 20131227
  Receipt Date: 20140219
  Transmission Date: 20141002
  Serious: Yes (Other)
  Sender: FDA-Public Use
  Company Number: AUR-APL-2013-10766

PATIENT
  Age: 55 Year
  Sex: Male
  Weight: 80 kg

DRUGS (3)
  1. GABAPENTIN [Suspect]
     Indication: SCIATICA
     Dosage: 1 IN 1 D
     Route: 048
     Dates: start: 20130322, end: 20130413
  2. OMEPRAZOLE [Suspect]
     Indication: PROPHYLAXIS AGAINST GASTROINTESTINAL ULCER
     Dosage: 1 IN 1 D
     Route: 048
     Dates: start: 20130313, end: 20130413
  3. KETOROLAC [Suspect]
     Indication: LUMBAR SPINAL STENOSIS
     Dates: start: 20130410, end: 20130413

REACTIONS (3)
  - Angioedema [None]
  - Urticaria [None]
  - Drug interaction [None]
